FAERS Safety Report 4579143-8 (Version None)
Quarter: 2005Q1

REPORT INFORMATION
  Report Type: 
  Country: None (occurrence: None)
  Receive Date: 20050121
  Receipt Date: 20041118
  Transmission Date: 20050727
  Serious: Yes (Other)
  Sender: FDA-Public Use
  Company Number: STA-AE-04-MTX-583

PATIENT
  Age: 51 Year
  Sex: Male

DRUGS (14)
  1. METHOTREXATE [Suspect]
     Indication: RHEUMATOID ARTHRITIS
     Dosage: 15 MG 1X PER 1 WK, ORAL
     Route: 048
     Dates: start: 20040611
  2. PLAQUENIL [Suspect]
     Indication: RHEUMATOID ARTHRITIS
     Dosage: 200 MG 1X PER 1 DAY, ORAL
     Route: 048
     Dates: start: 20000523
  3. LIPITOR [Concomitant]
  4. ELAVIL [Concomitant]
  5. LORAZEPAM (LOREZEPAM) [Concomitant]
  6. DICLYCLOMINE HYDROCHLORIDE (DICYCLOVERINE HYDROCHLORIDE) [Concomitant]
  7. FOLIC ACID [Concomitant]
  8. PAXIL [Concomitant]
  9. CENTRUM (MULTIVITAMIN/MULTIMINERAL) [Concomitant]
  10. CALCIUM CARBONATE (CALCIUM CARBONATE) [Concomitant]
  11. THERAGRAM -M (MINERALS NOS/VITAMINS NOS) [Concomitant]
  12. VITAMIN B12 [Concomitant]
  13. VITAMIN B6 [Concomitant]
  14. COENZYME Q10 [Concomitant]

REACTIONS (2)
  - HERPES ZOSTER [None]
  - PAIN [None]
